FAERS Safety Report 24571815 (Version 2)
Quarter: 2024Q4

REPORT INFORMATION
  Report Type: Spontaneous
  Country: US (occurrence: US)
  Receive Date: 20241101
  Receipt Date: 20241219
  Transmission Date: 20250115
  Serious: Yes (Other)
  Sender: PFIZER
  Company Number: US-PFIZER INC-202400288959

PATIENT
  Age: 64 Year
  Sex: Female
  Weight: 75.3 kg

DRUGS (11)
  1. ESTRING [Suspect]
     Active Substance: ESTRADIOL
     Indication: Lichen sclerosus
     Dosage: 7.5MCG A DAY; INSERT 1 RING VAGINALLY EVERY 3 MONTHS
     Route: 067
     Dates: start: 20241010, end: 20241010
  2. DOCUSATE [Concomitant]
     Active Substance: DOCUSATE
     Indication: Constipation
     Dosage: 100 MG, 2X/DAY
  3. ESTRADIOL [Concomitant]
     Active Substance: ESTRADIOL
     Dosage: 0.05 MG, 2X/WEEK(PATCH)
  4. ESTRADIOL [Concomitant]
     Active Substance: ESTRADIOL
     Dosage: APPLY EVERY OTHER DAY
  5. MOMETASONE FUROATE [Concomitant]
     Active Substance: MOMETASONE FUROATE
     Dosage: AS NEEDED BUT TYPICALLY ONCE A DAY
  6. LEVOTHYROXINE [Concomitant]
     Active Substance: LEVOTHYROXINE
     Indication: Thyroid disorder
     Dosage: 88 UG
  7. LIOTHYRONINE [Concomitant]
     Active Substance: LIOTHYRONINE
     Indication: Thyroid disorder
     Dosage: 2.5 MG, DAILY
  8. PROGESTERONE [Concomitant]
     Active Substance: PROGESTERONE
     Dosage: 200MG PER DAY FOR 14 DAYS AND CYCLES IT. IT ADDS TO CONSTIPATION OTHERWISE.
  9. SENNA LEAF [Concomitant]
     Active Substance: SENNA LEAF
     Dosage: AT BEDTIMES 8.6MG
  10. METHYLCOBALAMIN [Concomitant]
     Active Substance: METHYLCOBALAMIN
     Dosage: 5000 UG, 2X/DAY
  11. LUGOL [Concomitant]
     Active Substance: IODINE\POTASSIUM IODIDE
     Indication: Breast mass
     Dosage: UNK, 2X/DAY

REACTIONS (6)
  - Reaction to excipient [Recovered/Resolved]
  - Drug hypersensitivity [Recovered/Resolved]
  - Urticaria [Recovered/Resolved]
  - Product coating issue [Recovered/Resolved]
  - Device use issue [Unknown]
  - Off label use [Unknown]

NARRATIVE: CASE EVENT DATE: 20241001
